FAERS Safety Report 9278608 (Version 5)
Quarter: 2014Q1

REPORT INFORMATION
  Report Type: Spontaneous
  Country: US (occurrence: US)
  Receive Date: 20130508
  Receipt Date: 20140303
  Transmission Date: 20141002
  Serious: Yes (Hospitalization, Other)
  Sender: FDA-Public Use
  Company Number: US-PFIZER INC-2013141613

PATIENT
  Age: 22 Year
  Sex: Female

DRUGS (1)
  1. RELPAX [Suspect]
     Indication: MIGRAINE
     Dosage: 40 MG, AS NEEDED LIMIT 2 DOSE/ 24 HRS ONCE TO 2 DAYS/WEEK
     Route: 048

REACTIONS (4)
  - Convulsion [Unknown]
  - Cervix carcinoma [Unknown]
  - Loss of consciousness [Unknown]
  - Asthenia [Unknown]
